FAERS Safety Report 5443344-7 (Version None)
Quarter: 2007Q3

REPORT INFORMATION
  Report Type: 
  Country: None (occurrence: None)
  Receive Date: 20070831
  Receipt Date: 20070831
  Transmission Date: 20080115
  Serious: Yes (Hospitalization)
  Sender: FDA-Public Use
  Company Number: None

PATIENT
  Sex: Female
  Weight: 51.8 kg

DRUGS (1)
  1. CAMPTOSAR [Suspect]
     Dosage: 266 MG
     Dates: end: 20070808

REACTIONS (4)
  - ABDOMINAL PAIN [None]
  - ASTHENIA [None]
  - NAUSEA [None]
  - VOMITING [None]
